FAERS Safety Report 4898243-6 (Version None)
Quarter: 2006Q1

REPORT INFORMATION
  Report Type: 
  Country: None (occurrence: None)
  Receive Date: 20060201
  Receipt Date: 20050907
  Transmission Date: 20060701
  Serious: Yes (Hospitalization)
  Sender: FDA-Public Use
  Company Number: US-MERCK-0509USA00873

PATIENT
  Age: 53 Year
  Sex: Male
  Weight: 166 kg

DRUGS (8)
  1. VIOXX [Suspect]
     Indication: OSTEOARTHRITIS
     Route: 048
     Dates: start: 20010428, end: 20011124
  2. CARDURA [Concomitant]
     Indication: HYPERTENSION
     Route: 048
     Dates: start: 20010401
  3. CARDURA [Concomitant]
     Indication: BENIGN PROSTATIC HYPERPLASIA
     Route: 048
     Dates: start: 20010401
  4. ADVAIR DISKUS 100/50 [Concomitant]
     Indication: CHRONIC OBSTRUCTIVE PULMONARY DISEASE
     Route: 055
  5. LIPITOR [Concomitant]
     Indication: HYPERLIPIDAEMIA
     Route: 048
  6. LIPITOR [Concomitant]
     Route: 048
     Dates: start: 20010801
  7. MAG-OX 400 TABLETS [Concomitant]
     Indication: BLOOD MAGNESIUM DECREASED
     Route: 048
  8. MAG-OX 400 TABLETS [Concomitant]
     Route: 048
     Dates: start: 20010119

REACTIONS (13)
  - ANXIETY [None]
  - ARTERIOSCLEROSIS CORONARY ARTERY [None]
  - ARTHROPATHY [None]
  - ATRIAL FLUTTER [None]
  - BLOOD MAGNESIUM DECREASED [None]
  - CELLULITIS [None]
  - CHEST PAIN [None]
  - COSTOCHONDRITIS [None]
  - DYSPNOEA [None]
  - GOUT [None]
  - HEPATITIS C [None]
  - HYPERLIPIDAEMIA [None]
  - MYOCARDIAL INFARCTION [None]
